FAERS Safety Report 10972934 (Version 2)
Quarter: 2015Q2

REPORT INFORMATION
  Report Type: Spontaneous
  Country: US (occurrence: US)
  Receive Date: 20150331
  Receipt Date: 20150525
  Transmission Date: 20150821
  Serious: No
  Sender: FDA-Public Use
  Company Number: US-JNJFOC-20130216633

PATIENT

DRUGS (1)
  1. RISPERDAL CONSTA [Suspect]
     Active Substance: RISPERIDONE
     Indication: SCHIZOAFFECTIVE DISORDER
     Route: 030
     Dates: start: 20111008

REACTIONS (3)
  - Underdose [Not Recovered/Not Resolved]
  - Foreign body [Unknown]
  - Device malfunction [Unknown]

NARRATIVE: CASE EVENT DATE: 20130103
